FAERS Safety Report 8169922-2 (Version None)
Quarter: 2012Q1

REPORT INFORMATION
  Report Type: 
  Country: None (occurrence: None)
  Receive Date: 20120228
  Receipt Date: 20120228
  Transmission Date: 20120608
  Serious: Yes (Other)
  Sender: FDA-Public Use
  Company Number: None

PATIENT
  Age: 48 Year
  Sex: Female
  Weight: 68.038 kg

DRUGS (1)
  1. CIPROFLOXACIN HCL [Suspect]
     Indication: URINARY TRACT INFECTION
     Dosage: 1 TABLE
     Route: 048
     Dates: start: 20120208, end: 20120209

REACTIONS (22)
  - POST-TRAUMATIC NECK SYNDROME [None]
  - FEELING HOT [None]
  - SYNCOPE [None]
  - DRY MOUTH [None]
  - INFLAMMATION [None]
  - APNOEA [None]
  - HEADACHE [None]
  - VISION BLURRED [None]
  - HYPOAESTHESIA [None]
  - DEHYDRATION [None]
  - STRESS [None]
  - FUNGAL INFECTION [None]
  - VULVOVAGINAL PRURITUS [None]
  - ROAD TRAFFIC ACCIDENT [None]
  - HYPERSENSITIVITY [None]
  - CHEST DISCOMFORT [None]
  - GAIT DISTURBANCE [None]
  - DIZZINESS [None]
  - MUSCLE SPASMS [None]
  - MYALGIA [None]
  - TREMOR [None]
  - CYSTITIS [None]
